FAERS Safety Report 23756871 (Version 2)
Quarter: 2024Q2

REPORT INFORMATION
  Report Type: Spontaneous
  Country: RO (occurrence: RO)
  Receive Date: 20240418
  Receipt Date: 20240429
  Transmission Date: 20240716
  Serious: Yes (Other)
  Sender: FDA-Public Use
  Company Number: RO-IPSEN Group, Research and Development-2024-06311

PATIENT
  Age: 57 Year
  Sex: Female

DRUGS (2)
  1. LANREOTIDE ACETATE [Suspect]
     Active Substance: LANREOTIDE ACETATE
     Indication: Product used for unknown indication
     Route: 065
     Dates: start: 201704
  2. TEMOZOLOMIDE [Concomitant]
     Active Substance: TEMOZOLOMIDE
     Dosage: 6 CYCLE
     Dates: start: 201704

REACTIONS (10)
  - Cholecystectomy [Unknown]
  - Cholecystoenterostomy [Unknown]
  - Pneumothorax spontaneous [Unknown]
  - Pancreatic carcinoma [Unknown]
  - Haemangioma of liver [Unknown]
  - Metastases to liver [Unknown]
  - Hepatic cytolysis [Unknown]
  - Thrombocytopenia [Unknown]
  - Eastern Cooperative Oncology Group performance status worsened [Unknown]
  - Hepatomegaly [Unknown]

NARRATIVE: CASE EVENT DATE: 20190710
